FAERS Safety Report 7927920-5 (Version None)
Quarter: 2011Q4

REPORT INFORMATION
  Report Type: 
  Country: None (occurrence: None)
  Receive Date: 20111118
  Receipt Date: 20111025
  Transmission Date: 20120403
  Serious: No
  Sender: FDA-Public Use
  Company Number: CH-BAYER-2011-100603

PATIENT
  Age: 29 Year
  Sex: Female
  Weight: 53 kg

DRUGS (1)
  1. MIRENA [Suspect]
     Indication: CONTRACEPTION
     Dosage: 20 MCG/24HR, CONT
     Route: 015
     Dates: end: 20110630

REACTIONS (1)
  - PRURITUS GENERALISED [None]
